FAERS Safety Report 7893569 (Version 3)
Quarter: 2013Q3

REPORT INFORMATION
  Report Type: Spontaneous
  Country: US (occurrence: US)
  Receive Date: 20110411
  Receipt Date: 20130718
  Transmission Date: 20140515
  Serious: Yes (Hospitalization, Other)
  Sender: FDA-Public Use
  Company Number: US-US-EMD SERONO, INC.-7047850

PATIENT
  Age: 63 Year
  Sex: Male

DRUGS (4)
  1. REBIF [Suspect]
     Indication: MULTIPLE SCLEROSIS
     Route: 058
     Dates: start: 20091214, end: 201103
  2. REBIF [Suspect]
     Route: 058
     Dates: start: 20110404, end: 201306
  3. ADVIL                              /00109201/ [Concomitant]
     Indication: MUSCULOSKELETAL PAIN
  4. ASPIRIN                            /00002701/ [Concomitant]
     Indication: MUSCULOSKELETAL PAIN

REACTIONS (4)
  - Intestinal ulcer perforation [Recovering/Resolving]
  - Cataract operation [Unknown]
  - Multiple sclerosis relapse [Not Recovered/Not Resolved]
  - Diarrhoea [Unknown]
